FAERS Safety Report 25283098 (Version 2)
Quarter: 2025Q2

REPORT INFORMATION
  Report Type: Spontaneous
  Country: US (occurrence: US)
  Receive Date: 20250508
  Receipt Date: 20250509
  Transmission Date: 20250717
  Serious: No
  Sender: BAYER HEALTHCARE PHARMACEUTICALS INC.
  Company Number: US-BAYER-2025A061583

PATIENT
  Age: 53 Year
  Sex: Female

DRUGS (1)
  1. ESTRADIOL [Suspect]
     Active Substance: ESTRADIOL
     Dosage: UNK UNK, OW
     Route: 062
     Dates: start: 20250427

REACTIONS (3)
  - Device adhesion issue [None]
  - Vision blurred [None]
  - Wrong technique in product usage process [None]

NARRATIVE: CASE EVENT DATE: 20250101
